FAERS Safety Report 5136057-2 (Version None)
Quarter: 2006Q4

REPORT INFORMATION
  Report Type: 
  Country: None (occurrence: None)
  Receive Date: 20061020
  Receipt Date: 20061016
  Transmission Date: 20070319
  Serious: Yes (Hospitalization, Other)
  Sender: FDA-Public Use
  Company Number: HQWYE817504AUG04

PATIENT
  Age: 62 Year
  Sex: Female
  Weight: 45.4 kg

DRUGS (5)
  1. PREMPRO [Suspect]
     Indication: HORMONE REPLACEMENT THERAPY
     Dates: start: 19970301, end: 20020301
  2. PREMARIN [Suspect]
     Indication: OESTROGEN REPLACEMENT THERAPY
     Dates: start: 19930101, end: 19970301
  3. PROVERA [Suspect]
     Indication: HORMONE REPLACEMENT THERAPY
     Dates: start: 19930101, end: 19970301
  4. FOSAMAX [Concomitant]
  5. VIOXX [Concomitant]

REACTIONS (8)
  - BREAST CANCER METASTATIC [None]
  - ENDOMETRIAL HYPERTROPHY [None]
  - HEPATIC CYST [None]
  - IMMUNOLOGY TEST ABNORMAL [None]
  - LYMPHOEDEMA [None]
  - MAMMOGRAM ABNORMAL [None]
  - SCOLIOSIS [None]
  - SPINAL OSTEOARTHRITIS [None]
